FAERS Safety Report 5396602-9 (Version None)
Quarter: 2007Q3

REPORT INFORMATION
  Report Type: 
  Country: None (occurrence: None)
  Receive Date: 20070725
  Receipt Date: 20070717
  Transmission Date: 20080115
  Serious: Yes (Hospitalization)
  Sender: FDA-Public Use
  Company Number: AT-ABBOTT-07P-009-0375023-00

PATIENT
  Age: 61 Year
  Sex: Female

DRUGS (6)
  1. HUMIRA [Suspect]
     Indication: RHEUMATOID ARTHRITIS
     Route: 058
     Dates: start: 20060515, end: 20070121
  2. METHOTREXATE [Concomitant]
     Indication: RHEUMATOID ARTHRITIS
     Route: 048
     Dates: start: 20050201
  3. ESOMEPRAZOLE MAGNESIUM [Concomitant]
     Indication: DRUG USE FOR UNKNOWN INDICATION
     Route: 048
  4. ALENDRONATE SODIUM [Concomitant]
     Indication: RHEUMATOID ARTHRITIS
  5. CALCIUM CHLORIDE [Concomitant]
     Indication: RHEUMATOID ARTHRITIS
     Route: 048
  6. BUPRENORPHINE HCL [Concomitant]
     Indication: OSTEOARTHRITIS

REACTIONS (2)
  - DIARRHOEA [None]
  - ENTEROCOLITIS [None]
